FAERS Safety Report 4524746-X (Version None)
Quarter: 2004Q4

REPORT INFORMATION
  Report Type: 
  Country: None (occurrence: None)
  Receive Date: 20041209
  Receipt Date: 20041130
  Transmission Date: 20050328
  Serious: Yes (Other)
  Sender: FDA-Public Use
  Company Number: STA-AE-04-MTX-598

PATIENT
  Age: 64 Year
  Sex: Male

DRUGS (1)
  1. METHOTREXATE [Suspect]
     Indication: RHEUMATOID ARTHRITIS
     Dosage: 7.5 MG, ORAL
     Route: 048
     Dates: start: 20040101, end: 20040501

REACTIONS (3)
  - DRY MOUTH [None]
  - DYSARTHRIA [None]
  - SENSORY DISTURBANCE [None]
